FAERS Safety Report 17910555 (Version 6)
Quarter: 2023Q1

REPORT INFORMATION
  Report Type: Other
  Country: CA (occurrence: None)
  Receive Date: 20200618
  Receipt Date: 20230106
  Transmission Date: 20230417
  Serious: Yes (Other)
  Sender: FDA-Public Use
  Company Number: CA-ROCHE-2530942

PATIENT
  Age: 56 Year
  Sex: Male

DRUGS (3)
  1. OCREVUS [Suspect]
     Active Substance: OCRELIZUMAB
     Indication: Primary progressive multiple sclerosis
     Dosage: 300 MG AT DAY 0 AND 14, THEN 600 MG EVERY 6 MONTH
     Route: 042
     Dates: start: 20180816
  2. BISOPROLOL [Concomitant]
     Active Substance: BISOPROLOL
  3. VALSARTAN [Concomitant]
     Active Substance: VALSARTAN

REACTIONS (6)
  - Cardiac failure [Recovered/Resolved]
  - White blood cell count decreased [Unknown]
  - Influenza [Unknown]
  - Lymphocyte count decreased [Not Recovered/Not Resolved]
  - Lymphopenia [Unknown]
  - Hypogammaglobulinaemia [Unknown]

NARRATIVE: CASE EVENT DATE: 20200101
